FAERS Safety Report 5730461-7 (Version None)
Quarter: 2008Q2

REPORT INFORMATION
  Report Type: 
  Country: None (occurrence: None)
  Receive Date: 20080507
  Receipt Date: 20080429
  Transmission Date: 20081010
  Serious: Yes (Other)
  Sender: FDA-Public Use
  Company Number: GB-ROCHE-561890

PATIENT
  Sex: Female
  Weight: 87 kg

DRUGS (6)
  1. ORLISTAT [Suspect]
     Indication: OBESITY
     Route: 048
     Dates: start: 20080228, end: 20080408
  2. SERTRALINE [Concomitant]
     Indication: DEPRESSION
     Route: 048
  3. DIAZEPAM [Concomitant]
     Indication: DEPRESSION
     Route: 048
  4. ACETAMINOPHEN W/ CODEINE [Concomitant]
     Indication: ANALGESIA
     Route: 048
  5. ACETAMINOPHEN W/ CODEINE [Concomitant]
     Route: 048
  6. WARFARIN SODIUM [Concomitant]
     Indication: BLOOD DISORDER
     Route: 048

REACTIONS (1)
  - PULMONARY EMBOLISM [None]
